FAERS Safety Report 5383009-3 (Version None)
Quarter: 2007Q3

REPORT INFORMATION
  Report Type: 
  Country: None (occurrence: None)
  Receive Date: 20070710
  Receipt Date: 20070706
  Transmission Date: 20080115
  Serious: Yes (Hospitalization)
  Sender: FDA-Public Use
  Company Number: FR-BRISTOL-MYERS SQUIBB COMPANY-13826698

PATIENT
  Age: 10 Year
  Sex: Female
  Weight: 31 kg

DRUGS (4)
  1. NIFLURIL [Suspect]
     Route: 054
     Dates: start: 20070607
  2. AMOXICILLIN TRIHYDRATE [Suspect]
  3. DOLIPRANE [Concomitant]
  4. ADVIL LIQUI-GELS [Concomitant]

REACTIONS (2)
  - CONDITION AGGRAVATED [None]
  - OSTEOMYELITIS [None]
